FAERS Safety Report 12311374 (Version 1)
Quarter: 2016Q2

REPORT INFORMATION
  Report Type: Spontaneous
  Country: IT (occurrence: IT)
  Receive Date: 20160427
  Receipt Date: 20160427
  Transmission Date: 20160815
  Serious: Yes (Hospitalization, Other)
  Sender: FDA-Public Use
  Company Number: IT-ASTRAZENECA-2016SE42983

PATIENT
  Age: 16449 Day
  Sex: Male
  Weight: 58 kg

DRUGS (11)
  1. MESALAZINE [Concomitant]
     Active Substance: MESALAMINE
     Route: 048
     Dates: start: 20160407
  2. TRIATEC [Suspect]
     Active Substance: RAMIPRIL
     Route: 048
  3. MESALAZINE [Concomitant]
     Active Substance: MESALAMINE
     Route: 048
     Dates: end: 20160329
  4. ANTRA [Suspect]
     Active Substance: OMEPRAZOLE
     Route: 048
     Dates: start: 20160329
  5. CLEXANE [Suspect]
     Active Substance: ENOXAPARIN SODIUM
     Route: 058
     Dates: start: 20160329
  6. SELOKEN [Suspect]
     Active Substance: METOPROLOL
     Indication: ACUTE MYOCARDIAL INFARCTION
     Route: 048
     Dates: start: 20160329
  7. PANTORC [Suspect]
     Active Substance: PANTOPRAZOLE SODIUM
     Route: 048
     Dates: start: 20160330, end: 20160412
  8. CLOPIDOGREL [Suspect]
     Active Substance: CLOPIDOGREL BISULFATE
     Route: 048
     Dates: start: 20160329, end: 20160412
  9. CARDIOASPIRIN [Suspect]
     Active Substance: ASPIRIN
     Route: 048
     Dates: start: 20160329
  10. AGGRASTAT [Suspect]
     Active Substance: TIROFIBAN HYDROCHLORIDE
     Route: 065
  11. TORVAST [Suspect]
     Active Substance: ATORVASTATIN
     Route: 048

REACTIONS (2)
  - Colitis ulcerative [Recovering/Resolving]
  - Anaemia [Recovering/Resolving]

NARRATIVE: CASE EVENT DATE: 20160330
